FAERS Safety Report 26140838 (Version 1)
Quarter: 2025Q4

REPORT INFORMATION
  Report Type: Spontaneous
  Country: US (occurrence: US)
  Receive Date: 20251210
  Receipt Date: 20251210
  Transmission Date: 20260118
  Serious: No
  Sender: BAYER HEALTHCARE LLC
  Company Number: US-BAYER-2025A161616

PATIENT
  Age: 72 Year
  Sex: Female

DRUGS (1)
  1. ALEVE [Suspect]
     Active Substance: NAPROXEN SODIUM
     Indication: Pain
     Dosage: 1 OR 2 A DAY
     Route: 048
     Dates: start: 20251125, end: 20251203

REACTIONS (6)
  - Hypoaesthesia oral [None]
  - Swollen tongue [None]
  - Dyspnoea [None]
  - Hypoaesthesia oral [Recovering/Resolving]
  - Swollen tongue [None]
  - Dyspnoea [None]

NARRATIVE: CASE EVENT DATE: 20251125
